FAERS Safety Report 5815277-5 (Version None)
Quarter: 2008Q3

REPORT INFORMATION
  Report Type: 
  Country: None (occurrence: None)
  Receive Date: 20080718
  Receipt Date: 20080702
  Transmission Date: 20090109
  Serious: No
  Sender: FDA-Public Use
  Company Number: US-BOEHRINGER INGELHEIM GMBH, GERMANY-2006-BP-03375BP

PATIENT
  Age: 66 Year
  Sex: Male

DRUGS (10)
  1. ATROVENT HFA [Suspect]
     Indication: CHRONIC OBSTRUCTIVE PULMONARY DISEASE
     Route: 055
     Dates: start: 20060224, end: 20060312
  2. ALBUTEROL [Suspect]
     Indication: CHRONIC OBSTRUCTIVE PULMONARY DISEASE
  3. O2 [Concomitant]
     Indication: CHRONIC OBSTRUCTIVE PULMONARY DISEASE
  4. GLUCOTROL [Concomitant]
     Indication: DIABETES MELLITUS
  5. ALBUTEROL SULFATE [Concomitant]
  6. IPRATROPIUM (NEBULIZER) [Concomitant]
  7. MAGNESIUM [Concomitant]
  8. VYTORIN [Concomitant]
  9. THERMOLLINE [Concomitant]
  10. BYETTA [Concomitant]

REACTIONS (4)
  - BACK PAIN [None]
  - NONSPECIFIC REACTION [None]
  - PNEUMONIA [None]
  - PYREXIA [None]
